FAERS Safety Report 6063107-1 (Version None)
Quarter: 2009Q1

REPORT INFORMATION
  Report Type: 
  Country: None (occurrence: None)
  Receive Date: 20090203
  Receipt Date: 20090122
  Transmission Date: 20090719
  Serious: Yes (Death)
  Sender: FDA-Public Use
  Company Number: FR-PFIZER INC-2009160511

PATIENT

DRUGS (16)
  1. LYRICA [Suspect]
     Dates: start: 20080602, end: 20080709
  2. ABILIFY [Suspect]
     Dosage: EVERYDAY
     Route: 048
     Dates: start: 20080603, end: 20080707
  3. AUGMENTIN '125' [Suspect]
     Dates: start: 20080529, end: 20080621
  4. PYOSTACINE [Suspect]
     Dates: start: 20080621, end: 20080707
  5. OFLOCET [Suspect]
     Dates: start: 20080621, end: 20080707
  6. LASILIX [Concomitant]
  7. COVERSYL [Concomitant]
  8. PRAXILENE [Concomitant]
  9. EXELON [Concomitant]
  10. IXEL [Concomitant]
     Dates: end: 20080603
  11. LANTUS [Concomitant]
     Dates: end: 20080707
  12. COUMADIN [Concomitant]
  13. TEMESTA [Concomitant]
     Dates: start: 20080603
  14. MORPHINE [Concomitant]
     Dates: start: 20080603, end: 20080621
  15. OXYCONTIN [Concomitant]
     Dates: start: 20080621
  16. CODEINE [Concomitant]
     Dates: end: 20080707

REACTIONS (4)
  - FACE OEDEMA [None]
  - RASH [None]
  - RENAL FAILURE ACUTE [None]
  - THROMBOCYTOPENIA [None]
